FAERS Safety Report 25390789 (Version 1)
Quarter: 2025Q2

REPORT INFORMATION
  Report Type: Spontaneous
  Country: ES (occurrence: ES)
  Receive Date: 20250603
  Receipt Date: 20250603
  Transmission Date: 20250716
  Serious: Yes (Other)
  Sender: EISAI
  Company Number: None

PATIENT
  Age: 64 Year
  Sex: Male

DRUGS (1)
  1. LENVATINIB [Suspect]
     Active Substance: LENVATINIB
     Indication: Neoplasm malignant
     Dates: start: 20200320, end: 20250130

REACTIONS (1)
  - Embolism arterial [Recovering/Resolving]

NARRATIVE: CASE EVENT DATE: 20250129
